FAERS Safety Report 9188017 (Version 1)
Quarter: 2013Q1

REPORT INFORMATION
  Report Type: Report from Study
  Country: CA (occurrence: US)
  Receive Date: 20130325
  Receipt Date: 20130325
  Transmission Date: 20140127
  Serious: Yes (Other)
  Sender: FDA-Public Use
  Company Number: CA-GLAXOSMITHKLINE-A1016603A

PATIENT
  Age: 78 Year
  Sex: Male
  Weight: 105 kg

DRUGS (2)
  1. PAZOPANIB [Suspect]
     Indication: PROSTATE CANCER
     Dosage: 600MG PER DAY
     Route: 048
     Dates: start: 20101013
  2. BICALUTAMIDE [Suspect]
     Indication: PROSTATE CANCER
     Dosage: 50MG PER DAY
     Route: 048
     Dates: start: 20101020

REACTIONS (1)
  - Hypokalaemia [Recovered/Resolved]
